FAERS Safety Report 7332431-4 (Version None)
Quarter: 2011Q1

REPORT INFORMATION
  Report Type: 
  Country: None (occurrence: None)
  Receive Date: 20110304
  Receipt Date: 20110228
  Transmission Date: 20110831
  Serious: Yes (Other)
  Sender: FDA-Public Use
  Company Number: IT-JNJFOC-20110300961

PATIENT
  Age: 2 Year
  Sex: Male

DRUGS (1)
  1. INVEGA [Suspect]
     Indication: ACCIDENTAL DRUG INTAKE BY CHILD
     Dosage: 1 TABLET
     Route: 048

REACTIONS (3)
  - SLUGGISHNESS [None]
  - ATAXIA [None]
  - ACCIDENTAL DRUG INTAKE BY CHILD [None]
